FAERS Safety Report 4864637-8 (Version None)
Quarter: 2005Q4

REPORT INFORMATION
  Report Type: 
  Country: None (occurrence: None)
  Receive Date: 20051201
  Receipt Date: 20050702
  Transmission Date: 20060501
  Serious: No
  Sender: FDA-Public Use
  Company Number: 2005PV000237

PATIENT
  Age: 60 Year
  Sex: Female
  Weight: 63.05 kg

DRUGS (12)
  1. BYETTA [Suspect]
     Indication: DIABETES MELLITUS NON-INSULIN-DEPENDENT
     Dosage: 5 UG; BID; SC
     Route: 058
     Dates: start: 20050623
  2. ACIPHEX [Concomitant]
  3. SYNTHROID [Concomitant]
  4. EZETIMIBE [Concomitant]
  5. CARTIA XT [Concomitant]
  6. CALCIUM GLUCONATE [Concomitant]
  7. MULTIVITAMIN [Concomitant]
  8. ASPIRIN [Concomitant]
  9. NIACIN [Concomitant]
  10. GLUCOPHAGE [Concomitant]
  11. ACTOS [Concomitant]
  12. STARLIX [Concomitant]

REACTIONS (5)
  - BLOOD GLUCOSE DECREASED [None]
  - NAUSEA [None]
  - TREMOR [None]
  - VOMITING [None]
  - WEIGHT DECREASED [None]
